FAERS Safety Report 8721402 (Version 3)
Quarter: 2012Q4

REPORT INFORMATION
  Report Type: 
  Country: DE (occurrence: JP)
  Receive Date: 20120813
  Receipt Date: 20120914
  Transmission Date: 20130627
  Serious: Yes (Hospitalization)
  Sender: FDA-Public Use
  Company Number: JP-FRI-1000037660

PATIENT
  Age: 75 Year
  Sex: Female
  Weight: 39.5 kg

DRUGS (12)
  1. MEMANTINE [Suspect]
     Indication: DEMENTIA ALZHEIMER^S TYPE
     Dosage: 5 mg
     Route: 048
     Dates: start: 20120628, end: 20120704
  2. MEMANTINE [Suspect]
     Dosage: 10 mg
     Route: 048
     Dates: start: 20120705, end: 20120711
  3. MEMANTINE [Suspect]
     Indication: DEMENTIA ALZHEIMER^S TYPE
     Dosage: 20 mg
     Route: 048
     Dates: start: 20120712, end: 20120731
  4. VASOLAN [Concomitant]
     Indication: ARRHYTHMIA
     Dosage: 80 mg
     Route: 048
  5. CIBENOL [Concomitant]
     Indication: ARRHYTHMIA
     Dosage: 50 mg
     Route: 048
  6. ARICEPT D [Concomitant]
     Indication: DEMENTIA ALZHEIMER^S TYPE
     Dosage: 5 mg
     Route: 048
  7. RENIVACE [Concomitant]
     Indication: RENAL FAILURE CHRONIC
     Dosage: 10 mg
     Route: 048
  8. HERBESSER R [Concomitant]
     Indication: ARRHYTHMIA
     Dosage: 100 mg
     Route: 048
  9. TAKEPRON OD [Concomitant]
     Indication: GASTRITIS
     Dosage: 15 mg
     Route: 048
  10. PRIMPERAN [Concomitant]
     Indication: GASTRITIS
     Dosage: 5 mg
     Route: 048
  11. MAGMITT [Concomitant]
     Indication: CONSTIPATION
     Dosage: 750 mg
     Route: 048
  12. LENDORMIN D [Concomitant]
     Indication: INSOMNIA
     Dosage: 0.25 mg

REACTIONS (6)
  - Somnolence [Recovered/Resolved]
  - Decreased appetite [Recovered/Resolved]
  - Dehydration [Recovering/Resolving]
  - Renal failure chronic [Recovering/Resolving]
  - Depressed level of consciousness [Recovered/Resolved]
  - Dysphagia [None]
